FAERS Safety Report 7977895-8 (Version None)
Quarter: 2011Q4

REPORT INFORMATION
  Report Type: 
  Country: None (occurrence: None)
  Receive Date: 20111214
  Receipt Date: 20111205
  Transmission Date: 20120403
  Serious: Yes (Other)
  Sender: FDA-Public Use
  Company Number: NL-AMGEN-NLDSP2011065320

PATIENT
  Age: 65 Year
  Sex: Male

DRUGS (4)
  1. ENBREL [Suspect]
     Indication: RHEUMATOID ARTHRITIS
     Dosage: 50 MG, WEEKLY
     Dates: start: 20111014, end: 20111101
  2. METHOTREXATE [Concomitant]
     Dosage: 20 MG, WEEKLY
  3. PLAQUENIL [Concomitant]
     Dosage: 2 TIMES 200 MG
  4. FOLIC ACID [Concomitant]
     Dosage: 2 DF, WEEKLY

REACTIONS (4)
  - GUILLAIN-BARRE SYNDROME [None]
  - GLOSSODYNIA [None]
  - DYSGEUSIA [None]
  - HYPOAESTHESIA [None]
